FAERS Safety Report 15010060 (Version 1)
Quarter: 2018Q2

REPORT INFORMATION
  Report Type: Spontaneous
  Country: US (occurrence: US)
  Receive Date: 20180614
  Receipt Date: 20180614
  Transmission Date: 20180711
  Serious: No
  Sender: FDA-Public Use
  Company Number: US-PFIZER INC-2018239514

PATIENT
  Sex: Female

DRUGS (19)
  1. METOPROLOL TARTRATE. [Suspect]
     Active Substance: METOPROLOL TARTRATE
     Dosage: UNK
  2. IBUPROFEN. [Suspect]
     Active Substance: IBUPROFEN
     Dosage: UNK
  3. CEPHALEXIN. [Suspect]
     Active Substance: CEPHALEXIN
     Dosage: UNK
  4. ASA [Suspect]
     Active Substance: ASPIRIN
     Dosage: UNK
  5. AMLODIPINE BESILATE [Suspect]
     Active Substance: AMLODIPINE BESYLATE
     Dosage: UNK
  6. BUSPIRONE [Suspect]
     Active Substance: BUSPIRONE HYDROCHLORIDE
     Dosage: UNK
  7. NEBIVOLOL. [Suspect]
     Active Substance: NEBIVOLOL
     Dosage: UNK
  8. HYDROCODONE [Suspect]
     Active Substance: HYDROCODONE
     Dosage: UNK
  9. LOSARTAN. [Suspect]
     Active Substance: LOSARTAN
     Dosage: UNK
  10. GABAPENTIN. [Suspect]
     Active Substance: GABAPENTIN
     Dosage: UNK
  11. DEMEROL [Suspect]
     Active Substance: MEPERIDINE HYDROCHLORIDE
     Dosage: UNK
  12. FLUOXETINE [Suspect]
     Active Substance: FLUOXETINE HYDROCHLORIDE
     Dosage: UNK
  13. PRAVASTATIN. [Suspect]
     Active Substance: PRAVASTATIN
     Dosage: UNK
  14. CODEINE [Suspect]
     Active Substance: CODEINE
     Dosage: UNK
  15. VITAMIN D /00107901/ [Suspect]
     Active Substance: ERGOCALCIFEROL
     Dosage: UNK
  16. CIPRO [Suspect]
     Active Substance: CIPROFLOXACIN HYDROCHLORIDE
     Dosage: UNK
  17. CARVEDILOL. [Suspect]
     Active Substance: CARVEDILOL
     Dosage: UNK
  18. TRAMADOL. [Suspect]
     Active Substance: TRAMADOL
     Dosage: UNK
  19. ZYPREXA [Suspect]
     Active Substance: OLANZAPINE
     Dosage: UNK

REACTIONS (1)
  - Drug hypersensitivity [Unknown]
